FAERS Safety Report 20328618 (Version 1)
Quarter: 2022Q1

REPORT INFORMATION
  Report Type: Other
  Country: GB (occurrence: GB)
  Receive Date: 20220112
  Receipt Date: 20220112
  Transmission Date: 20220423
  Serious: No
  Sender: FDA-Public Use
  Company Number: None

PATIENT
  Age: 27 Year
  Sex: Male
  Weight: 88 kg

DRUGS (2)
  1. SERTRALINE [Suspect]
     Active Substance: SERTRALINE HYDROCHLORIDE
     Indication: Depression
     Dosage: 150 MG
     Route: 048
     Dates: start: 20211001, end: 20211228
  2. FIASP [Concomitant]
     Active Substance: INSULIN ASPART
     Indication: Ill-defined disorder
     Dosage: UNK
     Route: 065

REACTIONS (3)
  - Adverse drug reaction [Not Recovered/Not Resolved]
  - Nausea [Recovered/Resolved]
  - Hepatic function abnormal [Recovering/Resolving]
